FAERS Safety Report 10417550 (Version 2)
Quarter: 2015Q3

REPORT INFORMATION
  Report Type: Report from Study
  Country: BR (occurrence: BR)
  Receive Date: 20140829
  Receipt Date: 20150817
  Transmission Date: 20151125
  Serious: Yes (Other)
  Sender: FDA-Public Use
  Company Number: BR-BRISTOL-MYERS SQUIBB COMPANY-21336920

PATIENT
  Age: 30 Year
  Sex: Female
  Weight: 49 kg

DRUGS (5)
  1. 5-FLUOROURACIL                     /00098801/ [Concomitant]
     Active Substance: FLUOROURACIL
     Indication: COLORECTAL CANCER METASTATIC
     Dosage: UNK
     Route: 065
     Dates: start: 2010
  2. IRINOTECAN [Concomitant]
     Active Substance: IRINOTECAN
     Indication: COLORECTAL CANCER METASTATIC
     Dosage: UNK
     Route: 065
     Dates: start: 2010
  3. BUPROPION. [Concomitant]
     Active Substance: BUPROPION
     Indication: DEPRESSION
     Dosage: 1DF-1 TABLET
     Route: 065
  4. CETUXIMAB [Suspect]
     Active Substance: CETUXIMAB
     Indication: COLORECTAL CANCER METASTATIC
     Dosage: LAST DOSE ON 06AUG2014
     Route: 065
  5. LEUCOVORIN                         /00566701/ [Concomitant]
     Active Substance: LEUCOVORIN
     Indication: COLORECTAL CANCER METASTATIC
     Dosage: UNK
     Route: 065
     Dates: start: 2010

REACTIONS (11)
  - Candida infection [Unknown]
  - Nail bed inflammation [Not Recovered/Not Resolved]
  - Pruritus [Recovered/Resolved]
  - Metastases to liver [Not Recovered/Not Resolved]
  - Pneumonia [Unknown]
  - Hordeolum [Unknown]
  - Dry skin [Not Recovered/Not Resolved]
  - Rectosigmoid cancer [Not Recovered/Not Resolved]
  - Genital herpes [Unknown]
  - Conjunctivitis [Unknown]
  - Acne [Not Recovered/Not Resolved]

NARRATIVE: CASE EVENT DATE: 201104
